FAERS Safety Report 6598162-3 (Version None)
Quarter: 2010Q1

REPORT INFORMATION
  Report Type: 
  Country: None (occurrence: None)
  Receive Date: 20100224
  Receipt Date: 20050125
  Transmission Date: 20100710
  Serious: No
  Sender: FDA-Public Use
  Company Number: US-ALLERGAN-200411479

PATIENT
  Age: 24 Year
  Sex: Female

DRUGS (2)
  1. BOTOX [Suspect]
     Indication: DRUG USE FOR UNKNOWN INDICATION
     Route: 030
  2. BOTOX B [Suspect]
     Indication: DRUG USE FOR UNKNOWN INDICATION

REACTIONS (4)
  - FATIGUE [None]
  - INJECTION SITE MASS [None]
  - NIGHT SWEATS [None]
  - WEIGHT DECREASED [None]
